FAERS Safety Report 7602658-2 (Version None)
Quarter: 2011Q3

REPORT INFORMATION
  Report Type: 
  Country: None (occurrence: None)
  Receive Date: 20110712
  Receipt Date: 20110630
  Transmission Date: 20111222
  Serious: Yes (Hospitalization, Other)
  Sender: FDA-Public Use
  Company Number: GB-ELI_LILLY_AND_COMPANY-GB201106008777

PATIENT
  Age: 62 Year
  Sex: Female
  Weight: 84 kg

DRUGS (6)
  1. CITALOPRAM [Concomitant]
  2. OMEPRAZOLE [Concomitant]
  3. ACETAMINOPHEN [Concomitant]
  4. TRAMADOL HCL [Concomitant]
  5. DULOXETINE HYDROCHLORIDE [Suspect]
     Indication: DEPRESSION
     Dosage: 30 MG, UNKNOWN
     Route: 048
     Dates: start: 20110528, end: 20110609
  6. SIMVASTATIN [Concomitant]

REACTIONS (3)
  - PNEUMONIA KLEBSIELLA [None]
  - PANCREATITIS ACUTE [None]
  - ATELECTASIS [None]
